FAERS Safety Report 17730711 (Version 2)
Quarter: 2020Q2

REPORT INFORMATION
  Report Type: Report from Study
  Country: TR (occurrence: TR)
  Receive Date: 20200430
  Receipt Date: 20200519
  Transmission Date: 20200714
  Serious: Yes (Other)
  Sender: FDA-Public Use
  Company Number: TR-UCBSA-2019054746

PATIENT
  Age: 30 Year
  Sex: Female
  Weight: 53 kg

DRUGS (5)
  1. EFFEXOR [Concomitant]
     Active Substance: VENLAFAXINE HYDROCHLORIDE
     Indication: PRODUCT USED FOR UNKNOWN INDICATION
  2. SODIUM OXYBATE. [Suspect]
     Active Substance: SODIUM OXYBATE
     Indication: NARCOLEPSY
     Dosage: 7.5 G DAILY
     Route: 048
     Dates: start: 20191210
  3. TEGRETOL XR [Concomitant]
     Active Substance: CARBAMAZEPINE
     Indication: EPILEPSY
     Dosage: UNK
     Route: 048
     Dates: start: 20181203
  4. SODIUM OXYBATE. [Suspect]
     Active Substance: SODIUM OXYBATE
     Indication: CATAPLEXY
     Dosage: 3G MORNING AND 4.5G EVENING, 2X/DAY (BID)
     Dates: start: 20200428
  5. KEPPRA [Suspect]
     Active Substance: LEVETIRACETAM
     Indication: EPILEPSY
     Dosage: 500 MILLIGRAM, 3X/DAY (TID)
     Route: 048
     Dates: start: 20190506

REACTIONS (26)
  - Vomiting [Not Recovered/Not Resolved]
  - Asthenia [Unknown]
  - Headache [Unknown]
  - Vertigo [Not Recovered/Not Resolved]
  - Dyspnoea [Recovered/Resolved]
  - Initial insomnia [Not Recovered/Not Resolved]
  - Chills [Unknown]
  - Epilepsy [Recovered/Resolved]
  - Restlessness [Recovered/Resolved]
  - Dizziness [Not Recovered/Not Resolved]
  - Balance disorder [Unknown]
  - Somnolence [Unknown]
  - Sleep terror [Unknown]
  - Hyperhidrosis [Not Recovered/Not Resolved]
  - Anger [Not Recovered/Not Resolved]
  - Gastric disorder [Unknown]
  - Sleep disorder [Recovered/Resolved]
  - Malaise [Unknown]
  - Hyperacusis [Recovered/Resolved]
  - Off label use [Unknown]
  - Loss of consciousness [Recovered/Resolved]
  - Crying [Recovered/Resolved]
  - Nausea [Not Recovered/Not Resolved]
  - Abnormal dreams [Not Recovered/Not Resolved]
  - Cough [Recovered/Resolved]
  - Terminal insomnia [Not Recovered/Not Resolved]

NARRATIVE: CASE EVENT DATE: 20190506
